FAERS Safety Report 8215337-8 (Version None)
Quarter: 2012Q1

REPORT INFORMATION
  Report Type: 
  Country: None (occurrence: None)
  Receive Date: 20120316
  Receipt Date: 20120314
  Transmission Date: 20120608
  Serious: Yes (Other)
  Sender: FDA-Public Use
  Company Number: US-PFIZER INC-2012049995

PATIENT
  Sex: Female
  Weight: 69.841 kg

DRUGS (21)
  1. CHANTIX [Suspect]
     Dosage: 0.5 MG, 2X/DAY
     Route: 048
     Dates: start: 20100601, end: 20100601
  2. CHANTIX [Suspect]
     Dosage: 0.5 MG, 1X/DAY
     Route: 048
     Dates: start: 20110609, end: 20110623
  3. VESICARE [Concomitant]
     Indication: BLADDER DISORDER
     Dosage: UNK
  4. CHANTIX [Suspect]
     Indication: SMOKING CESSATION THERAPY
     Dosage: 0.5 MG, 1X/DAY
     Route: 048
     Dates: start: 20100601, end: 20100601
  5. CHANTIX [Suspect]
     Dosage: UNK
     Route: 048
     Dates: start: 20111101
  6. CHANTIX [Suspect]
     Dosage: 1 MG, 2X/DAY
     Route: 048
  7. ADVAIR DISKUS 100/50 [Concomitant]
     Dosage: UNK, 2X/DAY
  8. DUONEB [Concomitant]
     Dosage: UNK
  9. ZOFRAN [Concomitant]
     Dosage: 8 MG, 2X/DAY
  10. NEXIUM [Concomitant]
     Dosage: UNK, 1X\DAY
  11. SIMVASTATIN [Concomitant]
     Indication: BLOOD CHOLESTEROL INCREASED
     Dosage: UNK
  12. VESICARE [Concomitant]
     Dosage: 10 MG, 1X/DAY
  13. CIPROFLOXACIN [Concomitant]
     Indication: CYSTITIS
     Dosage: UNK
  14. SIMVASTATIN [Concomitant]
     Dosage: 40 MG, UNK
  15. ADVAIR DISKUS 100/50 [Concomitant]
     Dosage: UNK
  16. URSODIOL [Concomitant]
     Dosage: 300 MG, 2X/DAY
  17. CHANTIX [Suspect]
     Dosage: 0.5 MG, 1X/DAY
     Route: 048
     Dates: start: 20111031, end: 20111101
  18. NEXIUM [Concomitant]
     Indication: DYSPEPSIA
     Dosage: UNK
  19. ADVAIR DISKUS 100/50 [Concomitant]
     Dosage: UNK
  20. CHANTIX [Suspect]
     Dosage: 0.5 MG, 1X/DAY
     Route: 048
     Dates: start: 20111117
  21. COMBIVENT [Concomitant]
     Dosage: UNK

REACTIONS (9)
  - NERVE INJURY [None]
  - URINARY TRACT INFECTION [None]
  - INTERVERTEBRAL DISC DISORDER [None]
  - MUSCLE SPASMS [None]
  - ANXIETY [None]
  - PERSONALITY DISORDER [None]
  - ANGER [None]
  - MIDDLE INSOMNIA [None]
  - DEPRESSION [None]
